FAERS Safety Report 8875691 (Version 4)
Quarter: 2013Q1

REPORT INFORMATION
  Report Type: Spontaneous
  Country: GB (occurrence: GB)
  Receive Date: 20121023
  Receipt Date: 20130124
  Transmission Date: 20140127
  Serious: Yes (Hospitalization, Other)
  Sender: FDA-Public Use
  Company Number: PHFR2012GB005531

PATIENT
  Age: 58 Year
  Sex: Female

DRUGS (6)
  1. CLOZARIL [Suspect]
     Indication: SCHIZOPHRENIA
     Dosage: 25 MG, BD
     Route: 048
     Dates: start: 20121012
  2. CLOZARIL [Suspect]
     Dosage: 37.5 MG, UNK
     Route: 048
     Dates: start: 20121017, end: 20121019
  3. CLOZARIL [Suspect]
     Dosage: 12.5
     Route: 048
     Dates: start: 20121019
  4. CLOZARIL [Suspect]
  5. SODIUM VALPROATE [Concomitant]
     Dosage: 1000 MG, UNK
     Route: 048
     Dates: start: 20121015
  6. SODIUM VALPROATE [Concomitant]
     Dosage: 1300 MG, UNK
     Route: 048

REACTIONS (8)
  - Viral infection [Recovering/Resolving]
  - Wheezing [Recovering/Resolving]
  - Dyspnoea [Recovering/Resolving]
  - Blood pressure abnormal [Recovering/Resolving]
  - Parotid gland enlargement [Recovering/Resolving]
  - Local swelling [Recovering/Resolving]
  - Heart rate increased [Recovering/Resolving]
  - Salivary hypersecretion [Recovering/Resolving]
